FAERS Safety Report 12809390 (Version 1)
Quarter: 2016Q4

REPORT INFORMATION
  Report Type: Report from Study
  Country: US (occurrence: US)
  Receive Date: 20161005
  Receipt Date: 20161005
  Transmission Date: 20170207
  Serious: No
  Sender: FDA-Public Use
  Company Number: PHEH2016US024712

PATIENT
  Age: 80 Year
  Sex: Female

DRUGS (3)
  1. GLEEVEC [Suspect]
     Active Substance: IMATINIB MESYLATE
     Indication: CHRONIC MYELOID LEUKAEMIA
     Dosage: 400 MG, QD (ONCE DAILY)
     Route: 048
     Dates: start: 20160809
  2. METRONIDAZOL B BRAUN [Concomitant]
     Indication: DIVERTICULUM
     Dosage: UNK
     Route: 048
     Dates: start: 20160916, end: 20160919
  3. BACTRIM DS [Concomitant]
     Active Substance: SULFAMETHOXAZOLE\TRIMETHOPRIM
     Indication: DIVERTICULUM
     Dosage: UNK
     Route: 048
     Dates: start: 20160916, end: 20160919

REACTIONS (2)
  - Diverticulum [Unknown]
  - Rash generalised [Recovering/Resolving]

NARRATIVE: CASE EVENT DATE: 20160917
